FAERS Safety Report 4734906-0 (Version None)
Quarter: 2005Q3

REPORT INFORMATION
  Report Type: 
  Country: None (occurrence: None)
  Receive Date: 20050729
  Receipt Date: 20050718
  Transmission Date: 20060218
  Serious: No
  Sender: FDA-Public Use
  Company Number: 27020

PATIENT
  Sex: Male

DRUGS (4)
  1. ALDARA [Suspect]
     Indication: ACTINIC KERATOSIS
     Dosage: 3 IN 1 WEEK(S), TOPICAL
     Route: 061
     Dates: start: 20050101, end: 20050718
  2. SYNTHROID [Concomitant]
  3. MOTRIN [Concomitant]
  4. TYLENOL (CAPLET) [Concomitant]

REACTIONS (4)
  - APPLICATION SITE REACTION [None]
  - NIPPLE PAIN [None]
  - RASH MACULO-PAPULAR [None]
  - THROAT TIGHTNESS [None]
